FAERS Safety Report 25385430 (Version 1)
Quarter: 2025Q2

REPORT INFORMATION
  Report Type: Report from Study
  Country: CA (occurrence: CA)
  Receive Date: 20250602
  Receipt Date: 20250602
  Transmission Date: 20250716
  Serious: Yes (Other)
  Sender: SANDOZ
  Company Number: CA-SANDOZ-SDZ2024CA052618

PATIENT
  Sex: Male

DRUGS (1)
  1. ERELZI [Suspect]
     Active Substance: ETANERCEPT-SZZS
     Indication: Ankylosing spondylitis
     Dosage: 50 MG, QW (50 MG WEEKLY;WEEKLY) (ERELZI (PRE-FILLED SYRINGE))
     Route: 058
     Dates: start: 20240228

REACTIONS (1)
  - General physical health deterioration [Not Recovered/Not Resolved]
